FAERS Safety Report 15003957 (Version 2)
Quarter: 2018Q3

REPORT INFORMATION
  Report Type: Spontaneous
  Country: US (occurrence: US)
  Receive Date: 20180613
  Receipt Date: 20180821
  Transmission Date: 20181010
  Serious: No
  Sender: FDA-Public Use
  Company Number: US-ALK-ABELLO A/S-2018AA001527

PATIENT

DRUGS (10)
  1. ZYRTEC [Concomitant]
     Active Substance: CETIRIZINE HYDROCHLORIDE
     Dosage: 10 MILLIGRAM
  2. ALLERGEN EXTRACT, MITE [Concomitant]
     Active Substance: ALLERGENIC EXTRACT- MITE
     Dosage: 2000 AU/ML
  3. ALBUTEROL                          /00139501/ [Concomitant]
     Active Substance: ALBUTEROL
     Dosage: 17 GRAM
     Route: 055
  4. FLONASE [Concomitant]
     Active Substance: FLUTICASONE PROPIONATE
     Dosage: 50 MICROGRAM
     Route: 045
  5. PRENATAL VITAMINS                  /01549301/ [Concomitant]
     Active Substance: VITAMINS
  6. CLARITIN [Concomitant]
     Active Substance: LORATADINE
     Dosage: 10 MILLIGRAM
     Dates: start: 20180507
  7. AZELASTINE HYDROCHLORIDE. [Concomitant]
     Active Substance: AZELASTINE HYDROCHLORIDE
     Dosage: 0.1 PERCENT
     Route: 045
  8. TAE BULK 240 [Suspect]
     Active Substance: PASPALUM NOTATUM POLLEN
     Indication: PRODUCT USED FOR UNKNOWN INDICATION
     Route: 058
  9. ALLERGEN EXTRACTS [Concomitant]
     Active Substance: ALLERGENIC EXTRACTS
     Dosage: 6000 AU/ML
  10. CALCIUM W/VITAMIN D NOS [Concomitant]
     Active Substance: CALCIUM\VITAMIN D
     Dosage: 600 MILLIGRAM

REACTIONS (4)
  - Pruritus [Unknown]
  - Injection site urticaria [Unknown]
  - Dyspnoea [Unknown]
  - Pruritus [Unknown]

NARRATIVE: CASE EVENT DATE: 20180507
